FAERS Safety Report 8043508-2 (Version None)
Quarter: 2012Q1

REPORT INFORMATION
  Report Type: 
  Country: None (occurrence: None)
  Receive Date: 20120112
  Receipt Date: 20120103
  Transmission Date: 20120608
  Serious: Yes (Other)
  Sender: FDA-Public Use
  Company Number: US-ASTRAZENECA-2012SE00397

PATIENT
  Age: 25 Year
  Sex: Male
  Weight: 91.6 kg

DRUGS (10)
  1. PRAZOSIN HCL [Concomitant]
  2. VIIBRYD [Suspect]
     Indication: MAJOR DEPRESSION
     Route: 048
     Dates: start: 20110922, end: 20110928
  3. VIIBRYD [Suspect]
     Route: 048
     Dates: start: 20111006
  4. SEROQUEL [Suspect]
     Dosage: HALF TABLET AT BED TIME AS NEEDED
     Route: 048
     Dates: start: 20111001, end: 20111021
  5. VIIBRYD [Suspect]
     Indication: POST-TRAUMATIC STRESS DISORDER
     Route: 048
     Dates: start: 20110922, end: 20110928
  6. SEROQUEL [Suspect]
     Indication: INSOMNIA
     Route: 048
     Dates: start: 20111001, end: 20111021
  7. VIIBRYD [Suspect]
     Route: 048
     Dates: start: 20110929, end: 20111005
  8. VIIBRYD [Suspect]
     Route: 048
     Dates: start: 20110929, end: 20111005
  9. LORAZEPAM [Concomitant]
     Indication: ANXIETY
     Dosage: 1 MG UP TO BID
  10. VIIBRYD [Suspect]
     Route: 048
     Dates: start: 20111006

REACTIONS (2)
  - PARKINSON'S DISEASE [None]
  - OFF LABEL USE [None]
